FAERS Safety Report 17737073 (Version 2)
Quarter: 2020Q2

REPORT INFORMATION
  Report Type: Spontaneous
  Country: US (occurrence: US)
  Receive Date: 20200502
  Receipt Date: 20200523
  Transmission Date: 20200714
  Serious: Yes (Other)
  Sender: FDA-Public Use
  Company Number: US-MACLEODS PHARMACEUTICALS US LTD-MAC2020026348

PATIENT

DRUGS (5)
  1. OLANZAPINE DISINTEGRATING 5MG TABLET [Suspect]
     Active Substance: OLANZAPINE
     Indication: AGITATION
     Dosage: 5 MILLIGRAM
     Route: 048
  2. RISPERIDONE. [Interacting]
     Active Substance: RISPERIDONE
     Indication: ACUTE PSYCHOSIS
     Dosage: UNK, CROSS-TAPER FROM RISPERIDONE TO QUETIAPINE
     Route: 065
  3. LISDEXAMPHETAMINE [Interacting]
     Active Substance: LISDEXAMFETAMINE
     Indication: ATTENTION DEFICIT HYPERACTIVITY DISORDER
     Dosage: UNK
     Route: 065
  4. RISPERIDONE. [Interacting]
     Active Substance: RISPERIDONE
     Dosage: UNK, FOR SEVERAL MONTHS
     Route: 065
  5. QUETIAPINE. [Interacting]
     Active Substance: QUETIAPINE
     Indication: ACUTE PSYCHOSIS
     Dosage: UNK
     Route: 065

REACTIONS (4)
  - Oculogyric crisis [Recovered/Resolved]
  - Drug interaction [Recovered/Resolved]
  - Dystonia [Recovered/Resolved]
  - Withdrawal syndrome [Recovered/Resolved]
